FAERS Safety Report 19382365 (Version 1)
Quarter: 2021Q2

REPORT INFORMATION
  Report Type: Spontaneous
  Country: US (occurrence: US)
  Receive Date: 20210607
  Receipt Date: 20210607
  Transmission Date: 20210717
  Serious: Yes (Other)
  Sender: FDA-Public Use
  Company Number: US-PFIZER INC-2021395846

PATIENT
  Age: 41 Year
  Sex: Female

DRUGS (1)
  1. CYKLOKAPRON [Suspect]
     Active Substance: TRANEXAMIC ACID
     Dosage: UNK

REACTIONS (2)
  - Mycotic allergy [Unknown]
  - Lyme disease [Unknown]
